FAERS Safety Report 6630357-2 (Version None)
Quarter: 2010Q1

REPORT INFORMATION
  Report Type: 
  Country: None (occurrence: None)
  Receive Date: 20100311
  Receipt Date: 20090616
  Transmission Date: 20100710
  Serious: No
  Sender: FDA-Public Use
  Company Number: US-BIOGENIDEC-2009BI018446

PATIENT
  Age: 70 Year
  Sex: Female

DRUGS (8)
  1. AVONEX [Suspect]
     Indication: MULTIPLE SCLEROSIS
     Route: 030
     Dates: start: 20090411
  2. AVONEX [Suspect]
     Route: 030
     Dates: start: 20090501
  3. ZANAFLEX [Concomitant]
     Indication: MUSCLE SPASMS
     Route: 048
  4. DOXEPIN HCL [Concomitant]
     Indication: NEURALGIA
     Route: 048
  5. LYRICA [Concomitant]
     Indication: NEURALGIA
     Route: 048
  6. KEPPRA [Concomitant]
     Indication: NEURALGIA
     Route: 048
  7. TEKTURNA [Concomitant]
     Indication: HYPERTENSION
     Route: 048
  8. COREG [Concomitant]
     Indication: HYPERTENSION
     Route: 048

REACTIONS (4)
  - ASTHENIA [None]
  - COORDINATION ABNORMAL [None]
  - NEURALGIA [None]
  - SKIN BURNING SENSATION [None]
